FAERS Safety Report 4969046-9 (Version None)
Quarter: 2006Q2

REPORT INFORMATION
  Report Type: 
  Country: None (occurrence: None)
  Receive Date: 20060411
  Receipt Date: 20051109
  Transmission Date: 20061013
  Serious: Yes (Hospitalization)
  Sender: FDA-Public Use
  Company Number: US-MERCK-0511USA01883

PATIENT
  Age: 68 Year
  Sex: Male
  Weight: 91 kg

DRUGS (3)
  1. VIOXX [Suspect]
     Indication: RHEUMATOID ARTHRITIS
     Route: 048
     Dates: start: 20000501, end: 20040901
  2. VIOXX [Suspect]
     Route: 048
     Dates: start: 20000501, end: 20040901
  3. ALEVE [Concomitant]
     Route: 065

REACTIONS (3)
  - CHEST PAIN [None]
  - ISCHAEMIC STROKE [None]
  - MYOCARDIAL INFARCTION [None]
